FAERS Safety Report 13884960 (Version 1)
Quarter: 2017Q3

REPORT INFORMATION
  Report Type: Spontaneous
  Country: FR (occurrence: FR)
  Receive Date: 20170821
  Receipt Date: 20170821
  Transmission Date: 20171127
  Serious: Yes (Hospitalization)
  Sender: FDA-Public Use
  Company Number: FR-ROCHE-1978579

PATIENT
  Age: 66 Year
  Sex: Female

DRUGS (21)
  1. PREDNISONE. [Concomitant]
     Active Substance: PREDNISONE
     Dosage: DAY 1-5
     Route: 065
  2. ZELITREX [Concomitant]
     Active Substance: VALACYCLOVIR HYDROCHLORIDE
  3. VINCRISTINE SULPHATE [Concomitant]
     Active Substance: VINCRISTINE SULFATE
  4. ALLOPURINOL. [Concomitant]
     Active Substance: ALLOPURINOL
     Route: 065
  5. METHOTREXATE. [Suspect]
     Active Substance: METHOTREXATE
     Indication: HIGH GRADE B-CELL LYMPHOMA BURKITT-LIKE LYMPHOMA STAGE IV
     Dosage: 4830 MG
     Route: 042
     Dates: start: 20170605, end: 20170605
  6. UROMITEXAN [Concomitant]
     Active Substance: MESNA
  7. BACTRIM [Concomitant]
     Active Substance: SULFAMETHOXAZOLE\TRIMETHOPRIM
  8. METHOTREXATE. [Suspect]
     Active Substance: METHOTREXATE
     Route: 042
  9. DOXORUBICINE HYDROCHLORIDE [Concomitant]
     Active Substance: DOXORUBICIN HYDROCHLORIDE
     Indication: HIGH GRADE B-CELL LYMPHOMA BURKITT-LIKE LYMPHOMA STAGE IV
     Route: 042
     Dates: start: 20170603, end: 20170603
  10. SOLU-MEDROL [Concomitant]
     Active Substance: METHYLPREDNISOLONE SODIUM SUCCINATE
  11. FOLINORAL [Concomitant]
     Active Substance: LEUCOVORIN CALCIUM
  12. MOTILIUM [Concomitant]
     Active Substance: DOMPERIDONE
  13. CYCLOPHOSPHAMIDE. [Suspect]
     Active Substance: CYCLOPHOSPHAMIDE
     Indication: HIGH GRADE B-CELL LYMPHOMA BURKITT-LIKE LYMPHOMA STAGE IV
     Route: 042
     Dates: start: 20170603, end: 20170603
  14. OMEPRAZOLE. [Concomitant]
     Active Substance: OMEPRAZOLE
  15. PARACETAMOL [Concomitant]
     Active Substance: ACETAMINOPHEN
  16. FASTURTEC [Concomitant]
     Active Substance: RASBURICASE
  17. MABTHERA [Suspect]
     Active Substance: RITUXIMAB
     Indication: HIGH GRADE B-CELL LYMPHOMA BURKITT-LIKE LYMPHOMA STAGE IV
     Route: 042
     Dates: start: 20170603, end: 20170603
  18. POLARAMINE [Concomitant]
     Active Substance: DEXCHLORPHENIRAMINE MALEATE
  19. DEROXAT [Concomitant]
     Active Substance: PAROXETINE HYDROCHLORIDE
     Route: 065
  20. OXYCONTIN [Concomitant]
     Active Substance: OXYCODONE HYDROCHLORIDE
  21. ZOPHREN [Concomitant]
     Active Substance: ONDANSETRON

REACTIONS (3)
  - Product use in unapproved indication [Unknown]
  - Off label use [Unknown]
  - Acute kidney injury [Recovered/Resolved]

NARRATIVE: CASE EVENT DATE: 20170608
